FAERS Safety Report 5545364-0 (Version None)
Quarter: 2007Q4

REPORT INFORMATION
  Report Type: 
  Country: None (occurrence: None)
  Receive Date: 20071211
  Receipt Date: 20071207
  Transmission Date: 20080405
  Serious: Yes (Hospitalization)
  Sender: FDA-Public Use
  Company Number: BR-BRISTOL-MYERS SQUIBB COMPANY-14009492

PATIENT
  Sex: Male

DRUGS (2)
  1. PRAVACHOL [Suspect]
  2. SUSTRATE [Suspect]
     Route: 060

REACTIONS (1)
  - INFARCTION [None]
